FAERS Safety Report 5317855-9 (Version None)
Quarter: 2007Q2

REPORT INFORMATION
  Report Type: 
  Country: None (occurrence: None)
  Receive Date: 20070430
  Receipt Date: 20070412
  Transmission Date: 20071010
  Serious: Yes (Death)
  Sender: FDA-Public Use
  Company Number: DSA_29801_2007

PATIENT
  Age: 87 Year
  Sex: Female

DRUGS (6)
  1. MONO-TILDIEM (MONO-TILDIEM) 300 MG [Suspect]
     Dosage: (300 MG QD ORAL)
     Route: 048
  2. DIGOXIN [Suspect]
     Dosage: (1 DF QD ORAL)
     Route: 048
  3. FLODIL (FLODIL) 1 DF [Suspect]
     Dosage: (1 DF QD ORAL)
     Route: 048
  4. FUROSEMIDE (FUROSEMIDE) 1 DF [Suspect]
     Dosage: (1 DF QD ORAL)
     Route: 047
  5. TRANDOLAPRIL [Suspect]
     Dosage: (1 DF QD ORAL)
     Route: 048
  6. SOLUPRED [Concomitant]

REACTIONS (4)
  - CARDIAC ARREST [None]
  - GASTROINTESTINAL DISORDER [None]
  - RESPIRATORY ARREST [None]
  - THERAPEUTIC AGENT TOXICITY [None]
